FAERS Safety Report 10620010 (Version 4)
Quarter: 2015Q1

REPORT INFORMATION
  Report Type: Spontaneous
  Country: US (occurrence: None)
  Receive Date: 20141128
  Receipt Date: 20150105
  Transmission Date: 20150720
  Serious: Yes (Other)
  Sender: FDA-Public Use
  Company Number: 2014-US-015453

PATIENT
  Age: 55 Year
  Sex: Female
  Weight: 68 kg

DRUGS (1)
  1. XYREM [Suspect]
     Active Substance: SODIUM OXYBATE
     Indication: NARCOLEPSY
     Route: 048
     Dates: start: 201404, end: 2014

REACTIONS (9)
  - Bone pain [None]
  - Arthralgia [None]
  - Back pain [None]
  - Epilepsy [None]
  - Depression [None]
  - Osteoporosis [None]
  - Weight decreased [None]
  - Stress [None]
  - Pain in extremity [None]

NARRATIVE: CASE EVENT DATE: 201408
